FAERS Safety Report 11583785 (Version 1)
Quarter: 2015Q3

REPORT INFORMATION
  Report Type: Spontaneous
  Country: US (occurrence: None)
  Receive Date: 20150930
  Receipt Date: 20150930
  Transmission Date: 20151125
  Serious: Yes (Other)
  Sender: FDA-Public Use
  Company Number: None

PATIENT
  Sex: Female
  Weight: 109.32 kg

DRUGS (14)
  1. IPRATROPIUM BROMIDE. [Concomitant]
     Active Substance: IPRATROPIUM BROMIDE
  2. METFORMIN HCL [Concomitant]
     Active Substance: METFORMIN HYDROCHLORIDE
  3. ALBUTEROL SULFATE. [Concomitant]
     Active Substance: ALBUTEROL SULFATE
  4. HUMULIN R [Concomitant]
     Active Substance: INSULIN HUMAN
  5. FREESTYLE FREEDOM LITE W/DEVICE KIT (BLOOD GLUCOE MONITORING SUPPL) [Concomitant]
  6. FREESTYLE LANCETS MISC (LANCETS) [Concomitant]
  7. ADVOCAE INSULIN SYRINGES (INSULIN SYPRINE NEEDLE) [Concomitant]
  8. ALLEGRA [Concomitant]
     Active Substance: FEXOFENADINE HYDROCHLORIDE
  9. METFORMIN [Suspect]
     Active Substance: METFORMIN HYDROCHLORIDE
     Indication: DIABETES MELLITUS
     Route: 048
     Dates: start: 20150903, end: 20150921
  10. BD PEN NEDDLE (INSULIN PEN NEEDLE) [Concomitant]
  11. FREESTYLE LITE TESTG STRIP (GLUCOSE BLOOD) [Concomitant]
  12. BD INSULIN SYPRINGE ULTRAFINE [Concomitant]
  13. LANTUS [Concomitant]
     Active Substance: INSULIN GLARGINE
  14. NOVOLOG [Concomitant]
     Active Substance: INSULIN ASPART

REACTIONS (4)
  - Insomnia [None]
  - Vomiting [None]
  - Agitation [None]
  - Gastrointestinal disorder [None]
